FAERS Safety Report 4356369-X (Version None)
Quarter: 2004Q2

REPORT INFORMATION
  Report Type: 
  Country: None (occurrence: None)
  Receive Date: 20040506
  Receipt Date: 20040426
  Transmission Date: 20050107
  Serious: Yes (Hospitalization)
  Sender: FDA-Public Use
  Company Number: US-JNJFOC-20040405536

PATIENT
  Age: 75 Year
  Sex: Male
  Weight: 86.1834 kg

DRUGS (2)
  1. INFLIXIMAB (INFLIXIMAB, RECOMBINANT) LYOPHILIZED POWDER [Suspect]
     Indication: RHEUMATOID ARTHRITIS
     Dosage: INTRAVENOUS
     Route: 042
     Dates: start: 20010416
  2. METHOTREXATE [Concomitant]

REACTIONS (3)
  - CARDIAC PACEMAKER REVISION [None]
  - PACEMAKER COMPLICATION [None]
  - WOUND [None]
